FAERS Safety Report 11929576 (Version 1)
Quarter: 2016Q1

REPORT INFORMATION
  Report Type: Spontaneous
  Country: US (occurrence: None)
  Receive Date: 20160119
  Receipt Date: 20160119
  Transmission Date: 20160526
  Serious: Yes (Other)
  Sender: FDA-Public Use
  Company Number: None

PATIENT
  Age: 52 Year
  Sex: Female
  Weight: 68.04 kg

DRUGS (2)
  1. VITAMIN D [Concomitant]
     Active Substance: CHOLECALCIFEROL
  2. MIRENA [Suspect]
     Active Substance: LEVONORGESTREL
     Dates: start: 20131222, end: 20151101

REACTIONS (9)
  - Urticaria [None]
  - Depression [None]
  - Muscle spasms [None]
  - Abdominal pain [None]
  - Asthenia [None]
  - Alopecia [None]
  - Acne [None]
  - Dyspareunia [None]
  - Headache [None]

NARRATIVE: CASE EVENT DATE: 20150824
